FAERS Safety Report 5509951-8 (Version None)
Quarter: 2007Q4

REPORT INFORMATION
  Report Type: 
  Country: None (occurrence: None)
  Receive Date: 20071107
  Receipt Date: 20071107
  Transmission Date: 20080405
  Serious: Yes (Hospitalization)
  Sender: FDA-Public Use
  Company Number: None

PATIENT
  Sex: Female
  Weight: 50.1 kg

DRUGS (6)
  1. DECITABINE 50 MG UNKNOWN [Suspect]
     Indication: OVARIAN CANCER
     Dosage: 10 MG 1 HOUR X 5 DAYS IV
     Route: 042
     Dates: start: 20071029, end: 20071102
  2. CARBOPLATIN [Concomitant]
  3. TAXOL [Concomitant]
  4. TAMOXIFEN CITRATE [Concomitant]
  5. DOXIL [Concomitant]
  6. TOPOTECAN [Concomitant]

REACTIONS (2)
  - CONSTIPATION [None]
  - PAIN [None]
